FAERS Safety Report 8032986-0 (Version None)
Quarter: 2012Q1

REPORT INFORMATION
  Report Type: 
  Country: None (occurrence: None)
  Receive Date: 20120110
  Receipt Date: 20111230
  Transmission Date: 20120608
  Serious: Yes (Other)
  Sender: FDA-Public Use
  Company Number: US-ELI_LILLY_AND_COMPANY-US201101007417

PATIENT
  Sex: Male

DRUGS (12)
  1. OXYGEN [Concomitant]
     Dosage: UNK, PRN
  2. LORAZEPAM [Concomitant]
     Dosage: 1 MG, UNK
  3. PLAVIX [Concomitant]
     Dosage: 75 MG, QD
  4. ALBUTEROL SULFATE [Concomitant]
     Dosage: 3 MG, UNK
  5. FORTEO [Suspect]
     Dosage: 20 UG, QD
     Route: 058
  6. SINGULAIR [Concomitant]
     Dosage: 10 MG, QD
  7. ADVAIR DISKUS 100/50 [Concomitant]
     Dosage: UNK, QD
  8. FORTEO [Suspect]
     Indication: OSTEOPOROSIS
     Dosage: 20 UG, QD
     Route: 058
     Dates: start: 20101001
  9. ZOLPIDEM TARTRATE [Concomitant]
     Dosage: 10 MG, QD
  10. AZOR [Concomitant]
     Dosage: 20 MG, QD
  11. FORTEO [Suspect]
     Dosage: 20 UG, QD
     Route: 058
  12. SPIRIVA [Concomitant]
     Dosage: 18 UG, QD

REACTIONS (14)
  - WHITE BLOOD CELL COUNT ABNORMAL [None]
  - INTERVERTEBRAL DISC PROTRUSION [None]
  - PAIN [None]
  - WRIST SURGERY [None]
  - ARTHRALGIA [None]
  - CHRONIC LEUKAEMIA [None]
  - BLOOD PRESSURE FLUCTUATION [None]
  - BACK PAIN [None]
  - MUSCLE SPASMS [None]
  - BLOOD POTASSIUM DECREASED [None]
  - MUSCULOSKELETAL PAIN [None]
  - GROWING PAINS [None]
  - FALL [None]
  - BLOOD SODIUM DECREASED [None]
